FAERS Safety Report 8956175 (Version 2)
Quarter: 2012Q4

REPORT INFORMATION
  Report Type: 
  Country: TR (occurrence: TR)
  Receive Date: 20121210
  Receipt Date: 20121217
  Transmission Date: 20130627
  Serious: Yes (Hospitalization)
  Sender: FDA-Public Use
  Company Number: PHHY2012TR111481

PATIENT
  Age: 49 Year
  Sex: Male

DRUGS (2)
  1. AZATHIOPRINE [Suspect]
     Indication: PEMPHIGUS
  2. PREDNISOLONE SANDOZ [Suspect]
     Indication: PEMPHIGUS

REACTIONS (16)
  - Pancytopenia [Unknown]
  - Brucellosis [Recovered/Resolved]
  - Hepatosplenomegaly [Recovered/Resolved]
  - Hepatic enzyme increased [Recovered/Resolved]
  - Splenic abscess [Recovered/Resolved]
  - Pyrexia [Recovered/Resolved]
  - Chills [Recovered/Resolved]
  - Myalgia [Recovered/Resolved]
  - Arthralgia [Recovered/Resolved]
  - Fatigue [Recovered/Resolved]
  - Tremor [Recovered/Resolved]
  - Malaise [Recovered/Resolved]
  - Splenomegaly [Recovered/Resolved]
  - Ocular icterus [Recovered/Resolved]
  - Sepsis [Recovered/Resolved]
  - Brucella test positive [Recovered/Resolved]
